FAERS Safety Report 8003128-2 (Version None)
Quarter: 2011Q4

REPORT INFORMATION
  Report Type: 
  Country: None (occurrence: None)
  Receive Date: 20111222
  Receipt Date: 20111209
  Transmission Date: 20120403
  Serious: Yes (Other)
  Sender: FDA-Public Use
  Company Number: PHHY2010CA29379

PATIENT
  Sex: Male

DRUGS (4)
  1. SANDOSTATIN LAR [Suspect]
     Dosage: 30 MG, QMO
     Route: 030
  2. GLYBURIDE [Concomitant]
  3. SANDOSTATIN LAR [Suspect]
     Indication: PANCREATIC NEUROENDOCRINE TUMOUR
     Dosage: 30 MG, EVERY FOUR WEEKS
     Route: 030
     Dates: start: 20100429
  4. SANDOSTATIN LAR [Suspect]
     Dosage: 60 MG, EVERY FOUR WEEKS
     Route: 030

REACTIONS (12)
  - ABDOMINAL DISTENSION [None]
  - INJECTION SITE HAEMORRHAGE [None]
  - INJECTION SITE INDURATION [None]
  - BLOOD PRESSURE DIASTOLIC DECREASED [None]
  - BLOOD GLUCOSE INCREASED [None]
  - THROMBOSIS [None]
  - HEART RATE DECREASED [None]
  - ABDOMINAL PAIN [None]
  - THYROID CANCER [None]
  - DIARRHOEA [None]
  - NAUSEA [None]
  - CONSTIPATION [None]
